FAERS Safety Report 8111467 (Version 4)
Quarter: 2013Q1

REPORT INFORMATION
  Report Type: Spontaneous
  Country: US (occurrence: US)
  Receive Date: 20110829
  Receipt Date: 20130318
  Transmission Date: 20140127
  Serious: Yes (Hospitalization, Other)
  Sender: FDA-Public Use
  Company Number: PHEH2011US01740

PATIENT
  Age: 39 Year
  Sex: Female
  Weight: 139 kg

DRUGS (17)
  1. GILENYA [Suspect]
     Indication: MULTIPLE SCLEROSIS
     Dosage: 0.5 MG, QD
     Route: 048
     Dates: start: 20110812, end: 20110812
  2. LYRICA [Concomitant]
     Dosage: UNK UKN, UNK
  3. CYMBALTA [Concomitant]
     Dosage: UNK UKN, UNK
  4. NUVIGIL [Concomitant]
     Dosage: UNK UKN, UNK
     Route: 048
  5. LEVOTHYROXINE [Concomitant]
     Dosage: UNK UKN, UNK
  6. DIAZEPAM [Concomitant]
     Dosage: 2 MG, PRN
  7. ALPRAZOLAM [Concomitant]
     Dosage: UNK UKN, UNK
  8. DIHYDROERGOTAMINE [Concomitant]
     Dosage: UNK UKN, UNK
  9. AMBIEN [Concomitant]
     Dosage: UNK UKN, PRN
  10. OXYCONTIN [Concomitant]
     Dosage: UNK UKN, UNK
  11. OXYCODONE [Concomitant]
     Dosage: UNK UKN, UNK
  12. VALIUM [Concomitant]
     Dosage: UNK UKN, TID
     Route: 048
  13. AMBENE [Concomitant]
     Dosage: UNK UKN, QHS
  14. SYNTHROID [Concomitant]
     Dosage: UNK UKN, UNK
  15. PHENERGAN /00404701/ [Concomitant]
     Dosage: UNK UKN, PRN
  16. REBIF [Concomitant]
     Dosage: UNK UKN, UNK
  17. BOTOX [Concomitant]
     Dosage: UNK UKN, UNK

REACTIONS (11)
  - Axillary pain [Recovered/Resolved]
  - Chest pain [Recovered/Resolved]
  - Dyspnoea [Recovering/Resolving]
  - Vomiting [Recovered/Resolved]
  - Myocardial infarction [Recovered/Resolved]
  - Chest discomfort [Recovered/Resolved]
  - Pain in extremity [Recovered/Resolved]
  - Sinus bradycardia [Recovered/Resolved]
  - Nausea [Unknown]
  - White blood cell count decreased [Unknown]
  - Lymphocyte percentage decreased [Unknown]
